FAERS Safety Report 18154604 (Version 7)
Quarter: 2022Q1

REPORT INFORMATION
  Report Type: Spontaneous
  Country: US (occurrence: US)
  Receive Date: 20200817
  Receipt Date: 20220117
  Transmission Date: 20220423
  Serious: Yes (Hospitalization)
  Sender: FDA-Public Use
  Company Number: US-SA-2020SA209557

PATIENT
  Age: 23 Year
  Sex: Male

DRUGS (2)
  1. DUPIXENT [Suspect]
     Active Substance: DUPILUMAB
     Indication: Dermatitis atopic
     Dosage: 600 MG, 1X
     Route: 058
     Dates: start: 202007, end: 202007
  2. DUPIXENT [Suspect]
     Active Substance: DUPILUMAB
     Dosage: 300 MG, QOW
     Route: 058
     Dates: start: 2020

REACTIONS (8)
  - Asthma [Unknown]
  - Eyelids pruritus [Unknown]
  - Eye irritation [Unknown]
  - Psoriasis [Unknown]
  - Drug ineffective for unapproved indication [Unknown]
  - Eye infection [Unknown]
  - Eczema [Unknown]
  - Product dose omission issue [Unknown]

NARRATIVE: CASE EVENT DATE: 20200101
